FAERS Safety Report 25631389 (Version 2)
Quarter: 2025Q3

REPORT INFORMATION
  Report Type: Spontaneous
  Country: US (occurrence: US)
  Receive Date: 20250801
  Receipt Date: 20250909
  Transmission Date: 20251020
  Serious: Yes (Life-Threatening, Other)
  Sender: AUROBINDO
  Company Number: US-MLMSERVICE-20250716-PI581834-00232-1

PATIENT
  Age: 62 Year
  Sex: Male

DRUGS (4)
  1. MYCOPHENOLIC ACID [Suspect]
     Active Substance: MYCOPHENOLIC ACID
     Indication: Uveitis
     Dosage: 1500 MILLIGRAM, ONCE A DAY
     Route: 065
     Dates: start: 2014, end: 2020
  2. MYCOPHENOLIC ACID [Suspect]
     Active Substance: MYCOPHENOLIC ACID
     Indication: Ocular sarcoidosis
  3. PREDNISONE [Suspect]
     Active Substance: PREDNISONE
     Indication: Uveitis
     Dosage: 40 MILLIGRAM, ONCE A DAY
     Route: 065
     Dates: end: 2020
  4. PREDNISONE [Suspect]
     Active Substance: PREDNISONE
     Indication: Ocular sarcoidosis

REACTIONS (5)
  - Skin squamous cell carcinoma recurrent [Recovering/Resolving]
  - Metastatic squamous cell carcinoma [Recovering/Resolving]
  - Metastases to lymph nodes [Recovering/Resolving]
  - Metastases to chest wall [Recovering/Resolving]
  - Metastases to lung [Recovering/Resolving]

NARRATIVE: CASE EVENT DATE: 20200101
